FAERS Safety Report 7357694-0 (Version None)
Quarter: 2011Q1

REPORT INFORMATION
  Report Type: 
  Country: None (occurrence: None)
  Receive Date: 20110317
  Receipt Date: 20110307
  Transmission Date: 20110831
  Serious: Yes (Hospitalization, Other)
  Sender: FDA-Public Use
  Company Number: FR-SANOFI-AVENTIS-2011SA011204

PATIENT
  Age: 63 Year
  Sex: Female

DRUGS (7)
  1. RISPERDAL [Concomitant]
     Route: 055
     Dates: start: 20100707, end: 20100830
  2. XANAX [Concomitant]
     Route: 065
  3. STILNOX [Suspect]
     Route: 048
     Dates: start: 20060725, end: 20110206
  4. ALL OTHER THERAPEUTIC PRODUCTS [Concomitant]
  5. LYRICA [Concomitant]
     Route: 048
     Dates: start: 20100830, end: 20101019
  6. EFFEXOR [Concomitant]
     Route: 065
     Dates: start: 20080109, end: 20100901
  7. STILNOX [Suspect]
     Route: 048
     Dates: start: 19930101

REACTIONS (10)
  - SLEEP APNOEA SYNDROME [None]
  - CONDITION AGGRAVATED [None]
  - NERVOUSNESS [None]
  - MENTAL DISORDER [None]
  - CONFUSIONAL STATE [None]
  - TRANSIENT ISCHAEMIC ATTACK [None]
  - TOXICITY TO VARIOUS AGENTS [None]
  - APHASIA [None]
  - SPEECH DISORDER [None]
  - DISORIENTATION [None]
